FAERS Safety Report 12996233 (Version 1)
Quarter: 2016Q4

REPORT INFORMATION
  Report Type: Report from Study
  Country: JP (occurrence: JP)
  Receive Date: 20161203
  Receipt Date: 20161203
  Transmission Date: 20170207
  Serious: Yes (Life-Threatening, Hospitalization, Other)
  Sender: FDA-Public Use
  Company Number: JP-BAXTER-2016BAX059585

PATIENT
  Age: 49 Year
  Sex: Female

DRUGS (49)
  1. 5-FLUOROURACIL [Suspect]
     Active Substance: FLUOROURACIL
     Indication: HER-2 POSITIVE BREAST CANCER
     Dosage: FIRST CYCLE
     Route: 042
     Dates: start: 20140404
  2. KEISHIBUKURYOGAN [Concomitant]
     Active Substance: HERBALS
     Indication: ENDOMETRIOSIS
     Route: 065
     Dates: start: 2006, end: 20140620
  3. KEISHIBUKURYOGAN [Concomitant]
     Active Substance: HERBALS
     Indication: MENOPAUSAL SYMPTOMS
     Route: 065
     Dates: start: 201401, end: 20140620
  4. SOLACET F [Concomitant]
     Indication: PRODUCT USED FOR UNKNOWN INDICATION
     Route: 065
     Dates: start: 20140622, end: 20140704
  5. ZOLPIDEM TARTRATE. [Concomitant]
     Active Substance: ZOLPIDEM TARTRATE
     Indication: INSOMNIA
     Route: 065
  6. ENDOXAN 1G [Suspect]
     Active Substance: CYCLOPHOSPHAMIDE
     Dosage: FOURTH CYCLE
     Route: 042
     Dates: start: 20140606
  7. 5-FLUOROURACIL [Suspect]
     Active Substance: FLUOROURACIL
     Dosage: THIRD CYCLE
     Route: 042
     Dates: start: 20140516
  8. LOXONIN [Concomitant]
     Active Substance: LOXOPROFEN SODIUM
     Indication: PYREXIA
     Route: 065
     Dates: start: 20140718, end: 20140718
  9. LOXONIN [Concomitant]
     Active Substance: LOXOPROFEN SODIUM
     Indication: CELLULITIS
     Route: 065
     Dates: start: 20141008, end: 20141008
  10. SPIRONOLACTONE. [Concomitant]
     Active Substance: SPIRONOLACTONE
     Indication: OEDEMA PERIPHERAL
     Route: 065
     Dates: start: 20141003, end: 20141226
  11. RINDERON V [Concomitant]
     Active Substance: BETAMETHASONE VALERATE
     Indication: RADIATION SKIN INJURY
     Route: 065
     Dates: start: 20150522, end: 20150621
  12. METHYCOBAL [Concomitant]
     Active Substance: METHYLCOBALAMIN
     Indication: NEUROPATHY PERIPHERAL
     Route: 065
     Dates: start: 20141128, end: 20150317
  13. HEPARINOID [Concomitant]
     Active Substance: CHONDROITIN SULFATE (BOVINE)
     Indication: RADIATION SKIN INJURY
     Route: 065
     Dates: start: 20150529, end: 20150621
  14. ASVERIN (TIPEPIDINE HIBENZATE) [Concomitant]
     Active Substance: TIPEPIDINE HIBENZATE
     Indication: NASOPHARYNGITIS
     Route: 065
     Dates: start: 20150728, end: 20150802
  15. VITAMIN B1 [Concomitant]
     Active Substance: THIAMINE HYDROCHLORIDE
     Indication: NEUROPATHY PERIPHERAL
     Route: 065
     Dates: start: 20150901, end: 201603
  16. ENDOXAN 1G [Suspect]
     Active Substance: CYCLOPHOSPHAMIDE
     Dosage: SECOND CYCLE
     Route: 042
     Dates: start: 20140425
  17. 5-FLUOROURACIL [Suspect]
     Active Substance: FLUOROURACIL
     Dosage: SECOND CYCLE
     Route: 042
     Dates: start: 20140425
  18. DECADRON [Concomitant]
     Active Substance: DEXAMETHASONE
     Indication: PREMEDICATION
     Route: 065
     Dates: start: 20140404, end: 20140610
  19. CALONAL [Concomitant]
     Active Substance: ACETAMINOPHEN
     Indication: PYREXIA
     Route: 065
     Dates: start: 20140623, end: 20140630
  20. CRAVIT [Concomitant]
     Active Substance: LEVOFLOXACIN
     Route: 065
     Dates: start: 20141014, end: 20141028
  21. LASIX [Concomitant]
     Active Substance: FUROSEMIDE
     Indication: OEDEMA PERIPHERAL
     Route: 065
     Dates: start: 20140808, end: 20141226
  22. CRESTOR [Concomitant]
     Active Substance: ROSUVASTATIN CALCIUM
     Indication: HYPERLIPIDAEMIA
     Route: 065
     Dates: start: 20150707
  23. CALONAL [Concomitant]
     Active Substance: ACETAMINOPHEN
     Indication: NASOPHARYNGITIS
     Route: 065
     Dates: start: 20150728, end: 20150802
  24. MYCOSPOR [Concomitant]
     Active Substance: BIFONAZOLE
     Indication: VULVOVAGINAL CANDIDIASIS
     Route: 065
     Dates: start: 20140701, end: 20140707
  25. LIPITOR [Concomitant]
     Active Substance: ATORVASTATIN CALCIUM
     Indication: HYPERLIPIDAEMIA
     Route: 065
     Dates: start: 20140707, end: 20150317
  26. GASTER [Concomitant]
     Active Substance: FAMOTIDINE
     Indication: PROPHYLAXIS
     Route: 065
     Dates: start: 20140718, end: 20141003
  27. RINDERON V [Concomitant]
     Active Substance: BETAMETHASONE VALERATE
     Indication: CELLULITIS
     Route: 065
     Dates: start: 20141021, end: 20141028
  28. GENTACIN [Concomitant]
     Active Substance: GENTAMICIN SULFATE
     Indication: RADIATION SKIN INJURY
     Route: 065
     Dates: start: 20150522, end: 20150621
  29. LYRICA [Concomitant]
     Active Substance: PREGABALIN
     Indication: NEUROPATHY PERIPHERAL
     Route: 065
     Dates: start: 20150817, end: 20150831
  30. ENDOXAN 1G [Suspect]
     Active Substance: CYCLOPHOSPHAMIDE
     Indication: HER-2 POSITIVE BREAST CANCER
     Dosage: FIRST CYCLE
     Route: 042
     Dates: start: 20140404
  31. EPIRUBICIN [Suspect]
     Active Substance: EPIRUBICIN
     Dosage: SECOND CYCLE
     Route: 042
     Dates: start: 20140425
  32. DECADRON (DEXAMETHASONE SODIUM PHOSPHATE) [Concomitant]
     Active Substance: DEXAMETHASONE SODIUM PHOSPHATE
     Route: 065
     Dates: start: 20140718, end: 20141003
  33. ALOXI [Concomitant]
     Active Substance: PALONOSETRON HYDROCHLORIDE
     Indication: PROPHYLAXIS
     Route: 042
     Dates: start: 20140404, end: 20140606
  34. NEXIUM [Concomitant]
     Active Substance: ESOMEPRAZOLE MAGNESIUM
     Indication: PROPHYLAXIS
     Route: 065
     Dates: start: 20140622, end: 20150317
  35. CRAVIT [Concomitant]
     Active Substance: LEVOFLOXACIN
     Indication: CYSTITIS
     Route: 065
     Dates: start: 20140714, end: 20140718
  36. POLARAMINE [Concomitant]
     Active Substance: DEXCHLORPHENIRAMINE MALEATE
     Indication: PROPHYLAXIS
     Route: 065
     Dates: start: 20140718, end: 20141003
  37. ALESION [Concomitant]
     Active Substance: EPINASTINE HYDROCHLORIDE
     Indication: RHINITIS ALLERGIC
     Route: 065
     Dates: start: 20150406
  38. CEFDINIR. [Concomitant]
     Active Substance: CEFDINIR
     Indication: NASOPHARYNGITIS
     Route: 065
     Dates: start: 20150728, end: 20150802
  39. CARBOCISTEINE [Concomitant]
     Active Substance: CARBOCYSTEINE
     Indication: NASOPHARYNGITIS
     Route: 065
     Dates: start: 20150728, end: 20150802
  40. 5-FLUOROURACIL [Suspect]
     Active Substance: FLUOROURACIL
     Dosage: FOURTH CYCLE
     Route: 042
     Dates: start: 20140606
  41. EPIRUBICIN [Suspect]
     Active Substance: EPIRUBICIN
     Indication: HER-2 POSITIVE BREAST CANCER
     Dosage: FIRST CYCLE
     Route: 042
     Dates: start: 20140404
  42. EPIRUBICIN [Suspect]
     Active Substance: EPIRUBICIN
     Dosage: FOURTH CYCLE
     Route: 042
     Dates: start: 20140606
  43. DECADRON (DEXAMETHASONE SODIUM PHOSPHATE) [Concomitant]
     Active Substance: DEXAMETHASONE SODIUM PHOSPHATE
     Indication: PROPHYLAXIS
     Route: 065
     Dates: start: 20140404, end: 20140606
  44. EMEND [Concomitant]
     Active Substance: APREPITANT
     Indication: PROPHYLAXIS
     Route: 065
     Dates: start: 20140404, end: 20140608
  45. CRAVIT [Concomitant]
     Active Substance: LEVOFLOXACIN
     Route: 065
     Dates: start: 20150203, end: 20150205
  46. ENDOXAN 1G [Suspect]
     Active Substance: CYCLOPHOSPHAMIDE
     Dosage: THIRD CYCLE
     Route: 042
     Dates: start: 20140516
  47. EPIRUBICIN [Suspect]
     Active Substance: EPIRUBICIN
     Dosage: THIRD CYCLE
     Route: 042
     Dates: start: 20140516
  48. CRAVIT [Concomitant]
     Active Substance: LEVOFLOXACIN
     Route: 065
     Dates: start: 20140810, end: 20140816
  49. ALLEGRA [Concomitant]
     Active Substance: FEXOFENADINE HYDROCHLORIDE
     Indication: ECZEMA
     Route: 065
     Dates: start: 20140724, end: 20141023

REACTIONS (9)
  - Tricuspid valve incompetence [Unknown]
  - Cardiomegaly [Unknown]
  - Respiratory alkalosis [Unknown]
  - Pulmonary thrombosis [Recovered/Resolved]
  - Respiratory failure [Unknown]
  - Pulmonary embolism [Recovered/Resolved]
  - Deep vein thrombosis [Recovered/Resolved]
  - Cardiac failure [Unknown]
  - Loss of consciousness [Recovered/Resolved]

NARRATIVE: CASE EVENT DATE: 20140609
